FAERS Safety Report 6717693-6 (Version None)
Quarter: 2010Q2

REPORT INFORMATION
  Report Type: 
  Country: None (occurrence: None)
  Receive Date: 20100510
  Receipt Date: 20100428
  Transmission Date: 20101027
  Serious: Yes (Disabling, Other)
  Sender: FDA-Public Use
  Company Number: US-ROCHE-430213

PATIENT
  Sex: Male
  Weight: 88.9 kg

DRUGS (2)
  1. ACCUTANE [Suspect]
     Indication: ACNE
     Route: 048
     Dates: start: 19870101, end: 19880101
  2. ANTIBIOTICS NOS [Concomitant]

REACTIONS (39)
  - ARTERIAL RESTENOSIS [None]
  - ARTHRITIS [None]
  - BANKRUPTCY [None]
  - CHEST PAIN [None]
  - CHONDROPATHY [None]
  - COAGULOPATHY [None]
  - COLITIS ULCERATIVE [None]
  - CONTUSION [None]
  - CROHN'S DISEASE [None]
  - DEPRESSION [None]
  - FACIAL BONES FRACTURE [None]
  - FACIAL PALSY [None]
  - FAMILY STRESS [None]
  - FRACTURE [None]
  - HEAD INJURY [None]
  - HYPERTENSION [None]
  - HYPOAESTHESIA [None]
  - IMMUNE SYSTEM DISORDER [None]
  - INFLAMMATORY BOWEL DISEASE [None]
  - INTERVERTEBRAL DISC PROTRUSION [None]
  - IRON DEFICIENCY ANAEMIA [None]
  - JOINT DISLOCATION [None]
  - LOSS OF EMPLOYMENT [None]
  - MOUTH ULCERATION [None]
  - MUSCLE SPASMS [None]
  - MYOSITIS [None]
  - NASAL SEPTUM DEVIATION [None]
  - NECK INJURY [None]
  - NECK PAIN [None]
  - NOSE DEFORMITY [None]
  - OESOPHAGEAL ULCER [None]
  - PAIN IN EXTREMITY [None]
  - PARAESTHESIA [None]
  - REFLUX OESOPHAGITIS [None]
  - ROAD TRAFFIC ACCIDENT [None]
  - SINUS HEADACHE [None]
  - SOMNOLENCE [None]
  - SPINAL COLUMN STENOSIS [None]
  - ULNAR NERVE PALSY [None]
